FAERS Safety Report 7651294-0 (Version None)
Quarter: 2011Q3

REPORT INFORMATION
  Report Type: 
  Country: None (occurrence: None)
  Receive Date: 20110802
  Receipt Date: 20110729
  Transmission Date: 20111222
  Serious: Yes (Life-Threatening)
  Sender: FDA-Public Use
  Company Number: CA-SHIONOGI, INC-2010000241

PATIENT

DRUGS (2)
  1. TWINJECT 0.3 [Suspect]
     Indication: HYPERSENSITIVITY
     Dosage: 0.3 MG, AS NEEDED
     Dates: start: 20101125, end: 20101125
  2. HYDROMORPHONE HCL [Concomitant]

REACTIONS (2)
  - DEVICE MALFUNCTION [None]
  - PRODUCT QUALITY ISSUE [None]
